FAERS Safety Report 13682500 (Version 3)
Quarter: 2020Q2

REPORT INFORMATION
  Report Type: Spontaneous
  Country: BE (occurrence: BE)
  Receive Date: 20170623
  Receipt Date: 20200612
  Transmission Date: 20200713
  Serious: Yes (Life-Threatening, Hospitalization, Other)
  Sender: FDA-Public Use
  Company Number: BE-BRISTOL-MYERS SQUIBB COMPANY-BMS-2017-055871

PATIENT
  Age: 13 Year
  Sex: Male

DRUGS (2)
  1. OPDIVO [Suspect]
     Active Substance: NIVOLUMAB
     Indication: GLIOBLASTOMA
     Dosage: 123 MG, Q2WK
     Route: 042
     Dates: start: 20170518
  2. KEPPRA [Concomitant]
     Active Substance: LEVETIRACETAM
     Indication: EPILEPSY
     Dosage: 400 MG, Q2WK
     Route: 048
     Dates: start: 20161122

REACTIONS (2)
  - Intentional product use issue [Unknown]
  - Brain oedema [Recovered/Resolved]

NARRATIVE: CASE EVENT DATE: 20170619
